FAERS Safety Report 12596235 (Version 2)
Quarter: 2017Q1

REPORT INFORMATION
  Report Type: Report from Study
  Country: US (occurrence: US)
  Receive Date: 20160726
  Receipt Date: 20170126
  Transmission Date: 20170428
  Serious: No
  Sender: FDA-Public Use
  Company Number: US-AMGEN-USASL2016082097

PATIENT
  Age: 68 Year
  Sex: Male

DRUGS (3)
  1. KYPROLIS [Suspect]
     Active Substance: CARFILZOMIB
     Indication: PLASMA CELL MYELOMA
     Dosage: 65 MG, UNK
     Route: 065
     Dates: start: 201601, end: 201602
  2. COUMADIN [Concomitant]
     Active Substance: WARFARIN SODIUM
     Dosage: 9 MG, UNK
  3. BENADRYL [Concomitant]
     Active Substance: DIPHENHYDRAMINE HYDROCHLORIDE
     Dosage: UNK

REACTIONS (12)
  - Dyspnoea [Unknown]
  - Hypertension [Recovering/Resolving]
  - Protein total abnormal [Unknown]
  - Chest pain [Not Recovered/Not Resolved]
  - Off label use [Unknown]
  - Gastric hypomotility [Unknown]
  - Constipation [Unknown]
  - Feeling abnormal [Unknown]
  - Tinnitus [Unknown]
  - Chest discomfort [Not Recovered/Not Resolved]
  - Gastric dilatation [Unknown]
  - Blood pressure abnormal [Unknown]

NARRATIVE: CASE EVENT DATE: 2016
